FAERS Safety Report 6432697-9 (Version None)
Quarter: 2009Q4

REPORT INFORMATION
  Report Type: 
  Country: None (occurrence: None)
  Receive Date: 20091105
  Receipt Date: 20091020
  Transmission Date: 20100525
  Serious: Yes (Hospitalization)
  Sender: FDA-Public Use
  Company Number: DSA_41903_2009

PATIENT
  Age: 23 Year
  Sex: Male

DRUGS (2)
  1. BUPROPION HCL [Suspect]
     Indication: DEPRESSIVE SYMPTOM
     Dosage: (300 MG QD ORAL)
     Route: 048
  2. QUETIAPINE [Concomitant]

REACTIONS (10)
  - AGITATION [None]
  - BRAIN SCAN ABNORMAL [None]
  - CONFUSIONAL STATE [None]
  - DELIRIUM [None]
  - DISORIENTATION [None]
  - DIZZINESS [None]
  - INCOHERENT [None]
  - PSYCHOMOTOR HYPERACTIVITY [None]
  - SOMNOLENCE [None]
  - SPEECH DISORDER [None]
